FAERS Safety Report 5092185-1 (Version None)
Quarter: 2006Q3

REPORT INFORMATION
  Report Type: 
  Country: None (occurrence: None)
  Receive Date: 20060824
  Receipt Date: 20060811
  Transmission Date: 20061208
  Serious: Yes (Other)
  Sender: FDA-Public Use
  Company Number: 227959

PATIENT

DRUGS (4)
  1. AVASTIN [Suspect]
     Indication: NEOPLASM MALIGNANT
  2. FLUOROURACIL [Suspect]
     Indication: NEOPLASM MALIGNANT
  3. HYDROXYUREA [Suspect]
     Indication: NEOPLASM MALIGNANT
  4. RADIOTHERAPY (RADIATION THERAPY) [Suspect]
     Indication: NEOPLASM MALIGNANT

REACTIONS (2)
  - ARTERIAL RUPTURE [None]
  - CAROTID ARTERY DISEASE [None]
